FAERS Safety Report 17429435 (Version 4)
Quarter: 2020Q2

REPORT INFORMATION
  Report Type: Spontaneous
  Country: US (occurrence: US)
  Receive Date: 20200218
  Receipt Date: 20200527
  Transmission Date: 20200713
  Serious: No
  Sender: FDA-Public Use
  Company Number: US-JNJFOC-20200219942

PATIENT
  Age: 18 Year
  Sex: Male
  Weight: 74.91 kg

DRUGS (2)
  1. TREMFYA [Suspect]
     Active Substance: GUSELKUMAB
     Route: 058
     Dates: start: 2019
  2. TREMFYA [Suspect]
     Active Substance: GUSELKUMAB
     Indication: PSORIASIS
     Route: 058
     Dates: start: 20191211

REACTIONS (7)
  - Therapeutic response decreased [Unknown]
  - Needle issue [Unknown]
  - Product use issue [Unknown]
  - Drug delivery system malfunction [Unknown]
  - Off label use [Unknown]
  - Psoriasis [Unknown]
  - Product dose omission [Unknown]

NARRATIVE: CASE EVENT DATE: 2019
